FAERS Safety Report 10142112 (Version 1)
Quarter: 2014Q2

REPORT INFORMATION
  Report Type: Spontaneous
  Country: CA (occurrence: CA)
  Receive Date: 20140429
  Receipt Date: 20140429
  Transmission Date: 20141212
  Serious: Yes (Other)
  Sender: FDA-Public Use
  Company Number: CA-GILEAD-2014-0100829

PATIENT
  Sex: Female

DRUGS (11)
  1. TRUVADA [Suspect]
     Indication: HIV INFECTION
     Dosage: UNK
     Route: 065
     Dates: start: 201203
  2. ISENTRESS [Suspect]
     Indication: HIV INFECTION
     Dosage: UNK
     Route: 065
     Dates: start: 201203
  3. SPIRIVA [Concomitant]
     Dosage: 18 ?G, QD
  4. SYMBICORT [Concomitant]
     Dosage: UNK, BID
  5. TYLENOL                            /00020001/ [Concomitant]
  6. ADVIL                              /00044201/ [Concomitant]
     Dosage: UNK, PRN
  7. SEROQUEL [Concomitant]
     Dosage: 175 MG, UNK
  8. LAMICTAL [Concomitant]
     Dosage: 225 MG, UNK
  9. TYLENOL WITH CODEINE NO.3 [Concomitant]
     Dosage: UNK, PRN
  10. VITAMIN B12 NOS [Concomitant]
  11. VITAMIN B3 [Concomitant]

REACTIONS (1)
  - Obliterative bronchiolitis [Unknown]
